FAERS Safety Report 20699745 (Version 1)
Quarter: 2022Q2

REPORT INFORMATION
  Report Type: Spontaneous
  Country: US (occurrence: None)
  Receive Date: 20220409
  Receipt Date: 20220409
  Transmission Date: 20220721
  Serious: Yes (Disabling)
  Sender: FDA-Public Use
  Company Number: None

PATIENT
  Age: 66 Year
  Sex: Female
  Weight: 54.9 kg

DRUGS (6)
  1. RISEDRONATE SODIUM [Suspect]
     Active Substance: RISEDRONATE SODIUM
     Indication: Osteoporosis
     Dosage: OTHER QUANTITY : 1 CAPSULE(S);?OTHER FREQUENCY : ONCE A MONTH;?
     Route: 048
     Dates: start: 20210701, end: 20220301
  2. CALCIUM [Concomitant]
     Active Substance: CALCIUM
  3. VITAMIN D3 [Concomitant]
     Active Substance: CHOLECALCIFEROL
  4. MAGNESIUM [Concomitant]
  5. BIOTIN [Concomitant]
  6. VITAMIN C [Concomitant]
     Active Substance: ASCORBIC ACID

REACTIONS (5)
  - Arthritis [None]
  - Tendon pain [None]
  - Myalgia [None]
  - Pain in extremity [None]
  - Therapy cessation [None]

NARRATIVE: CASE EVENT DATE: 20220112
